FAERS Safety Report 23553456 (Version 2)
Quarter: 2024Q2

REPORT INFORMATION
  Report Type: Spontaneous
  Country: US (occurrence: US)
  Receive Date: 20240222
  Receipt Date: 20240425
  Transmission Date: 20240715
  Serious: No
  Sender: FDA-Public Use
  Company Number: US-Nova Laboratories Limited-2153547

PATIENT
  Age: 24 Month
  Sex: Female

DRUGS (4)
  1. PURIXAN [Suspect]
     Active Substance: MERCAPTOPURINE
     Indication: Acute lymphocytic leukaemia
     Route: 048
  2. PURIXAN [Suspect]
     Active Substance: MERCAPTOPURINE
  3. PURIXAN [Suspect]
     Active Substance: MERCAPTOPURINE
  4. PURIXAN [Suspect]
     Active Substance: MERCAPTOPURINE

REACTIONS (1)
  - Expired product administered [Recovered/Resolved]
